FAERS Safety Report 13417583 (Version 1)
Quarter: 2017Q2

REPORT INFORMATION
  Report Type: Spontaneous
  Country: US (occurrence: US)
  Receive Date: 20170407
  Receipt Date: 20170407
  Transmission Date: 20170830
  Serious: Yes (Death)
  Sender: FDA-Public Use
  Company Number: US-BAUSCH-BL-2017-008626

PATIENT
  Age: 68 Year
  Sex: Female

DRUGS (2)
  1. XIFAXAN [Suspect]
     Active Substance: RIFAXIMIN
     Indication: CIRRHOSIS ALCOHOLIC
     Route: 065
     Dates: start: 20161227
  2. XIFAXAN [Suspect]
     Active Substance: RIFAXIMIN
     Indication: ASCITES

REACTIONS (1)
  - Death [Fatal]

NARRATIVE: CASE EVENT DATE: 20170327
